FAERS Safety Report 6303419-7 (Version None)
Quarter: 2009Q3

REPORT INFORMATION
  Report Type: 
  Country: None (occurrence: None)
  Receive Date: 20090810
  Receipt Date: 20090729
  Transmission Date: 20100115
  Serious: Yes (Life-Threatening, Hospitalization)
  Sender: FDA-Public Use
  Company Number: FR-PFIZER INC-2009247051

PATIENT
  Age: 41 Year

DRUGS (8)
  1. XANAX [Suspect]
     Dosage: 4 DF, SINGLE
     Route: 048
     Dates: start: 20090712, end: 20090712
  2. LEXOMIL [Suspect]
     Dosage: 40 DF, SINGLE
     Route: 048
     Dates: start: 20090712, end: 20090712
  3. TRAMADOL HYDROCHLORIDE AND ACETAMINOPHEN [Suspect]
     Dosage: UNK, SINGLE
     Route: 048
     Dates: start: 20090712, end: 20090712
  4. CREON [Concomitant]
  5. DI-ANTALVIC [Concomitant]
  6. STILNOX [Concomitant]
  7. TERCIAN [Concomitant]
  8. SPECIAFOLDINE [Concomitant]

REACTIONS (2)
  - DISTURBANCE IN ATTENTION [None]
  - HYPOTENSION [None]
